FAERS Safety Report 7544597-1 (Version None)
Quarter: 2011Q2

REPORT INFORMATION
  Report Type: 
  Country: None (occurrence: None)
  Receive Date: 20110614
  Receipt Date: 20110607
  Transmission Date: 20111010
  Serious: Yes (Death)
  Sender: FDA-Public Use
  Company Number: US-BIOGENIDEC-2011BI001547

PATIENT
  Age: 52 Year
  Sex: Male
  Weight: 64 kg

DRUGS (4)
  1. ABILIFY [Concomitant]
     Route: 048
     Dates: start: 20091201, end: 20101220
  2. SEROQUEL [Concomitant]
     Route: 048
     Dates: start: 20100615, end: 20101220
  3. LEXAPRO [Concomitant]
     Route: 048
     Dates: start: 20060101, end: 20101220
  4. TYSABRI [Suspect]
     Indication: MULTIPLE SCLEROSIS
     Route: 042
     Dates: start: 20081009, end: 20100914

REACTIONS (1)
  - HUNTINGTON'S DISEASE [None]
